FAERS Safety Report 12836917 (Version 2)
Quarter: 2016Q4

REPORT INFORMATION
  Report Type: Spontaneous
  Country: US (occurrence: US)
  Receive Date: 20161011
  Receipt Date: 20161202
  Transmission Date: 20170207
  Serious: Yes (Other)
  Sender: FDA-Public Use
  Company Number: US-ENDO PHARMACEUTICALS INC.-2016-006108

PATIENT
  Sex: Female
  Weight: 40.86 kg

DRUGS (2)
  1. CLONIDINE HYDROCHLORIDE TABLETS [Suspect]
     Active Substance: CLONIDINE HYDROCHLORIDE
     Indication: ANXIETY
     Route: 065
  2. CLONIDINE HYDROCHLORIDE TABLETS [Suspect]
     Active Substance: CLONIDINE HYDROCHLORIDE
     Indication: WITHDRAWAL SYNDROME

REACTIONS (18)
  - Muscle disorder [Unknown]
  - Back disorder [Unknown]
  - Erythema [Unknown]
  - Skin odour abnormal [Unknown]
  - Pain [Unknown]
  - Speech disorder [Unknown]
  - Dry mouth [Unknown]
  - Insomnia [Unknown]
  - Oral disorder [Unknown]
  - Nerve injury [Unknown]
  - Feeling abnormal [Unknown]
  - Tremor [Unknown]
  - Oedema [Unknown]
  - Palpitations [Unknown]
  - Off label use [Unknown]
  - Multiple chemical sensitivity [Not Recovered/Not Resolved]
  - Toxic shock syndrome [Not Recovered/Not Resolved]
  - Activities of daily living impaired [Unknown]
